FAERS Safety Report 19692899 (Version 1)
Quarter: 2021Q3

REPORT INFORMATION
  Report Type: Spontaneous
  Country: DE (occurrence: DE)
  Receive Date: 20210813
  Receipt Date: 20210813
  Transmission Date: 20211014
  Serious: Yes (Hospitalization, Disabling, Other)
  Sender: FDA-Public Use
  Company Number: DE-AUROBINDO-AUR-APL-2021-034316

PATIENT
  Sex: Male

DRUGS (7)
  1. CANDECOR COMP [Concomitant]
     Active Substance: CANDESARTAN CILEXETIL\HYDROCHLOROTHIAZIDE
     Indication: PRODUCT USED FOR UNKNOWN INDICATION
     Dosage: 1 DOSAGE FORM, ONCE A DAY (IN THE MORNING)
     Route: 065
     Dates: start: 201810
  2. CANDESARTAN. [Concomitant]
     Active Substance: CANDESARTAN
     Indication: HYPERTONIA
     Dosage: 16 MILLIGRAM, ONCE A DAY (IN THE MORNING (1?0?0))
     Route: 065
     Dates: start: 20180731
  3. VALSARTAN. [Suspect]
     Active Substance: VALSARTAN
     Dosage: 1 DOSAGE FORM, ONCE A DAY (IN THE MORNING)
     Route: 065
     Dates: start: 2009, end: 201809
  4. VALSARTAN. [Suspect]
     Active Substance: VALSARTAN
     Indication: HYPERTENSION
     Dosage: UNK
     Route: 065
  5. CORTISONE [Suspect]
     Active Substance: CORTISONE
     Indication: PRODUCT USED FOR UNKNOWN INDICATION
     Dosage: UNK
     Route: 065
  6. CLEXANE [Concomitant]
     Active Substance: ENOXAPARIN SODIUM
     Indication: PRODUCT USED FOR UNKNOWN INDICATION
     Dosage: 0.4 MILLILITER, ONCE A DAY (IN THE EVENING, 0?0?1?0)
     Route: 058
  7. METAMIZOLE SODIUM [Concomitant]
     Active Substance: METAMIZOLE SODIUM
     Indication: PRODUCT USED FOR UNKNOWN INDICATION
     Dosage: UNK (AS NEEDED (UP TO 6 TABLETS DAILY))
     Route: 065

REACTIONS (32)
  - Transitional cell carcinoma [Unknown]
  - Spinal osteoarthritis [Unknown]
  - Tinnitus [Not Recovered/Not Resolved]
  - Hypertension [Unknown]
  - Fatigue [Not Recovered/Not Resolved]
  - Spinal stenosis [Unknown]
  - Inguinal hernia [Unknown]
  - Hypoaesthesia [Recovering/Resolving]
  - Insomnia [Unknown]
  - Bladder transitional cell carcinoma recurrent [Unknown]
  - Pain [Unknown]
  - Fistula [Unknown]
  - Quality of life decreased [Unknown]
  - Urethral pain [Unknown]
  - Bladder cancer [Unknown]
  - Neck pain [Not Recovered/Not Resolved]
  - Bladder pain [Unknown]
  - Haematuria [Unknown]
  - Haemorrhage [Unknown]
  - Prostatic adenoma [Unknown]
  - Diverticulitis [Unknown]
  - Headache [Not Recovered/Not Resolved]
  - Chest discomfort [Unknown]
  - Pain in extremity [Recovered/Resolved]
  - Product contamination [Unknown]
  - Intervertebral disc protrusion [Unknown]
  - Depression [Not Recovered/Not Resolved]
  - Limb discomfort [Unknown]
  - Urinary retention [Unknown]
  - Testis cancer [Unknown]
  - Paraesthesia [Recovering/Resolving]
  - Abdominal pain [Unknown]

NARRATIVE: CASE EVENT DATE: 201012
